FAERS Safety Report 5510174-7 (Version None)
Quarter: 2007Q4

REPORT INFORMATION
  Report Type: 
  Country: None (occurrence: None)
  Receive Date: 20071106
  Receipt Date: 20071019
  Transmission Date: 20080405
  Serious: Yes (Other)
  Sender: FDA-Public Use
  Company Number: 8027062

PATIENT
  Age: 86 Year
  Sex: Female
  Weight: 80 kg

DRUGS (6)
  1. KEPPRA [Suspect]
     Indication: EPILEPSY
     Dosage: 1000 MG 2/D PO
     Route: 048
     Dates: start: 20070201, end: 20070801
  2. ISCOVER [Concomitant]
  3. CONCOR /00802602/ [Concomitant]
  4. D [Concomitant]
  5. ZOCOR [Concomitant]
  6. LORZAAR [Concomitant]

REACTIONS (2)
  - COGNITIVE DISORDER [None]
  - FATIGUE [None]
